FAERS Safety Report 7197595-4 (Version None)
Quarter: 2010Q4

REPORT INFORMATION
  Report Type: 
  Country: None (occurrence: None)
  Receive Date: 20101227
  Receipt Date: 20101218
  Transmission Date: 20110411
  Serious: Yes (Hospitalization, Other)
  Sender: FDA-Public Use
  Company Number: US-SANOFI-AVENTIS-2010SA077168

PATIENT
  Age: 62 Year
  Sex: Male

DRUGS (4)
  1. GLIMEPIRIDE [Suspect]
     Indication: TYPE 2 DIABETES MELLITUS
     Dosage: 4 MG IN THE MORNING AND 2 MG IN THE EVENING
     Route: 048
     Dates: start: 20090101
  2. BYETTA [Suspect]
     Route: 065
     Dates: end: 20100101
  3. BYETTA [Suspect]
     Route: 065
     Dates: start: 20100101
  4. LANTUS [Concomitant]
     Dosage: DOSE:4 UNIT(S)
     Route: 058
     Dates: start: 20101217

REACTIONS (3)
  - BLOOD GLUCOSE INCREASED [None]
  - BLOOD POTASSIUM INCREASED [None]
  - NEPHROLITHIASIS [None]
